FAERS Safety Report 6156220-1 (Version None)
Quarter: 2009Q2

REPORT INFORMATION
  Report Type: 
  Country: None (occurrence: None)
  Receive Date: 20090415
  Receipt Date: 20090408
  Transmission Date: 20091009
  Serious: Yes (Other)
  Sender: FDA-Public Use
  Company Number: DE-ROXANE LABORATORIES, INC.-2009-RO-00360RO

PATIENT
  Age: 24 Year
  Sex: Male
  Weight: 74 kg

DRUGS (8)
  1. FLUCONAZOLE [Suspect]
     Indication: ENCEPHALITIS
     Dosage: 400MG
  2. ZIDOVUDINE [Suspect]
     Indication: ANTIRETROVIRAL THERAPY
  3. AMPHOTERICIN B [Suspect]
     Indication: ENCEPHALITIS
     Dosage: 35MG
  4. FLUCYTOSINE [Suspect]
     Indication: ENCEPHALITIS
     Dosage: 10G
  5. EFAVIRENZ [Suspect]
     Indication: ANTIRETROVIRAL THERAPY
  6. LAMIVUDINE [Suspect]
     Indication: ANTIRETROVIRAL THERAPY
  7. VORICONAZOLE [Suspect]
     Indication: ENCEPHALITIS
  8. DEXAMETHASONE TAB [Concomitant]
     Indication: IMMUNE RECONSTITUTION SYNDROME

REACTIONS (3)
  - DRUG RESISTANCE [None]
  - ENCEPHALITIS [None]
  - IMMUNE RECONSTITUTION SYNDROME [None]
